FAERS Safety Report 10609798 (Version 1)
Quarter: 2014Q4

REPORT INFORMATION
  Report Type: Spontaneous
  Country: IT (occurrence: IT)
  Receive Date: 20141126
  Receipt Date: 20141126
  Transmission Date: 20150529
  Serious: Yes (Death)
  Sender: FDA-Public Use
  Company Number: IT-BAYER-2014-170669

PATIENT
  Age: 72 Year
  Sex: Male

DRUGS (4)
  1. NEXAVAR [Suspect]
     Active Substance: SORAFENIB
     Dosage: DAILY DOSE 400 MG
     Route: 048
     Dates: start: 20141031, end: 20141109
  2. PANTECTA [Concomitant]
     Active Substance: PANTOPRAZOLE SODIUM
  3. ALDACTONE [Concomitant]
     Active Substance: SPIRONOLACTONE
  4. LASIX [Concomitant]
     Active Substance: FUROSEMIDE

REACTIONS (2)
  - Angina pectoris [Fatal]
  - Death [Fatal]

NARRATIVE: CASE EVENT DATE: 20141110
